FAERS Safety Report 9405356 (Version 1)
Quarter: 2013Q3

REPORT INFORMATION
  Report Type: Spontaneous
  Country: IT (occurrence: None)
  Receive Date: 20130715
  Receipt Date: 20130715
  Transmission Date: 20140515
  Serious: Yes (Other)
  Sender: FDA-Public Use
  Company Number: GER/ITL/13/0030444

PATIENT
  Age: 50 Year
  Sex: Female

DRUGS (3)
  1. LEVETIRACETAM (LEVETIRACETAM) [Suspect]
     Indication: EPILEPSY
     Route: 048
     Dates: start: 20130628, end: 20130701
  2. COMBISARTAN (CO-DIOVAN) [Concomitant]
  3. GARDENALE (PHENOBARBITAL) [Concomitant]

REACTIONS (6)
  - Asthenia [None]
  - Epilepsy [None]
  - Fall [None]
  - Somnolence [None]
  - Contusion [None]
  - Contusion [None]
